FAERS Safety Report 22043326 (Version 1)
Quarter: 2023Q1

REPORT INFORMATION
  Report Type: Spontaneous
  Country: CN (occurrence: CN)
  Receive Date: 20230228
  Receipt Date: 20230228
  Transmission Date: 20230418
  Serious: Yes (Hospitalization, Other)
  Sender: FDA-Public Use
  Company Number: CN-GLAXOSMITHKLINE-CNCH2023APC008333

PATIENT

DRUGS (1)
  1. VOLTAREN [Suspect]
     Active Substance: DICLOFENAC SODIUM
     Indication: Pain
     Dosage: 75 MG, QD
     Route: 048
     Dates: start: 20230205, end: 20230213

REACTIONS (12)
  - Peptic ulcer [Recovering/Resolving]
  - Abdominal pain upper [Recovering/Resolving]
  - Nausea [Recovering/Resolving]
  - Gastrooesophageal reflux disease [Recovered/Resolved]
  - Dry mouth [Recovering/Resolving]
  - Asthenia [Recovering/Resolving]
  - Abdominal pain [Recovering/Resolving]
  - Chest pain [Recovering/Resolving]
  - Gastrointestinal erosion [Recovering/Resolving]
  - Large intestine polyp [Recovering/Resolving]
  - Gastritis erosive [Recovering/Resolving]
  - Fatigue [Recovering/Resolving]

NARRATIVE: CASE EVENT DATE: 20230211
